FAERS Safety Report 17424561 (Version 1)
Quarter: 2020Q1

REPORT INFORMATION
  Report Type: Spontaneous
  Country: AR (occurrence: AR)
  Receive Date: 20200217
  Receipt Date: 20200217
  Transmission Date: 20200409
  Serious: Yes (Other)
  Sender: FDA-Public Use
  Company Number: AR-GLAXOSMITHKLINE-AR2020023658

PATIENT
  Sex: Male

DRUGS (1)
  1. REQUIP PD 24 HOUR [Suspect]
     Active Substance: ROPINIROLE HYDROCHLORIDE
     Indication: PARKINSON^S DISEASE
     Dosage: 8 MG
     Route: 048

REACTIONS (4)
  - Product dose omission [Unknown]
  - Hallucination [Unknown]
  - Posture abnormal [Unknown]
  - Pain in extremity [Unknown]
